FAERS Safety Report 15407161 (Version 2)
Quarter: 2018Q4

REPORT INFORMATION
  Report Type: Spontaneous
  Country: TR (occurrence: TR)
  Receive Date: 20180920
  Receipt Date: 20181001
  Transmission Date: 20190204
  Serious: Yes (Other)
  Sender: FDA-Public Use
  Company Number: TR-IMPAX LABORATORIES, INC-2018-IPXL-02994

PATIENT
  Age: 23 Year
  Sex: Female

DRUGS (1)
  1. METOCLOPRAMIDE HYDROCHLORIDE IR [Suspect]
     Active Substance: METOCLOPRAMIDE HYDROCHLORIDE
     Indication: NAUSEA
     Dosage: UNK
     Route: 042

REACTIONS (3)
  - Maternal exposure during pregnancy [Unknown]
  - Anaphylactic reaction [Recovered/Resolved]
  - Kounis syndrome [Recovered/Resolved]
